FAERS Safety Report 6540711-5 (Version None)
Quarter: 2010Q1

REPORT INFORMATION
  Report Type: 
  Country: None (occurrence: None)
  Receive Date: 20100118
  Receipt Date: 20100108
  Transmission Date: 20100710
  Serious: Yes (Other)
  Sender: FDA-Public Use
  Company Number: US-BAYER-200829743GPV

PATIENT
  Age: 82 Year
  Sex: Male

DRUGS (3)
  1. MOXIFLOXACIN HCL [Suspect]
     Indication: EMPYEMA
     Route: 048
  2. AZITHROMYCIN [Concomitant]
     Indication: EMPYEMA
     Route: 042
  3. CEFTRIAXONE [Concomitant]
     Indication: EMPYEMA
     Route: 042

REACTIONS (3)
  - JAUNDICE [None]
  - PRURITUS [None]
  - VANISHING BILE DUCT SYNDROME [None]
